FAERS Safety Report 5760150-4 (Version None)
Quarter: 2008Q2

REPORT INFORMATION
  Report Type: 
  Country: None (occurrence: None)
  Receive Date: 20080605
  Receipt Date: 20080523
  Transmission Date: 20081010
  Serious: No
  Sender: FDA-Public Use
  Company Number: US-BOEHRINGER INGELHEIM GMBH, GERMANY-2008-BP-08089BP

PATIENT
  Age: 62 Year
  Sex: Male

DRUGS (7)
  1. FLOMAX [Suspect]
     Indication: BENIGN PROSTATIC HYPERPLASIA
     Route: 048
     Dates: start: 20080401
  2. TOPROL-XL [Concomitant]
     Indication: HYPERTENSION
  3. DIAZIDE [Concomitant]
     Indication: HYPERTENSION
  4. NEXIUM [Concomitant]
     Indication: GASTROOESOPHAGEAL REFLUX DISEASE
  5. SINGULAIR [Concomitant]
     Indication: ASTHMA
  6. AGGRENOX [Concomitant]
     Indication: TRANSIENT ISCHAEMIC ATTACK
     Dosage: NR
  7. ATIVAN [Concomitant]
     Indication: ANXIETY

REACTIONS (1)
  - SEMEN VOLUME DECREASED [None]
